FAERS Safety Report 10176106 (Version 1)
Quarter: 2014Q2

REPORT INFORMATION
  Report Type: Spontaneous
  Country: GB (occurrence: GB)
  Receive Date: 20140516
  Receipt Date: 20140516
  Transmission Date: 20141212
  Serious: Yes (Disabling)
  Sender: FDA-Public Use
  Company Number: GB-ELI_LILLY_AND_COMPANY-GB201405002603

PATIENT
  Age: 70 Year
  Sex: Female
  Weight: 45 kg

DRUGS (6)
  1. TERIPARATIDE [Suspect]
     Indication: OSTEOPOROSIS
     Dosage: UNK
     Route: 058
     Dates: start: 201306, end: 20131220
  2. CACIT VITAMINE D3 [Concomitant]
     Dosage: UNK
     Route: 048
  3. LORATADINE [Concomitant]
     Dosage: 5 MG, UNK
     Route: 048
  4. CHOLECALCIFEROL [Concomitant]
     Dosage: 100000 IU, UNK
     Route: 048
     Dates: start: 201303, end: 201303
  5. CHOLECALCIFEROL [Concomitant]
     Dosage: 100000 IU, UNK
     Route: 048
     Dates: start: 201305, end: 201305
  6. PARACETAMOL [Concomitant]
     Dosage: 250 MG, WEEKLY (1/W)
     Route: 048

REACTIONS (8)
  - Arthralgia [Recovering/Resolving]
  - Musculoskeletal stiffness [Recovering/Resolving]
  - Influenza like illness [Recovering/Resolving]
  - Fatigue [Recovering/Resolving]
  - Night sweats [Recovering/Resolving]
  - Rhinitis [Recovering/Resolving]
  - Food intolerance [Recovering/Resolving]
  - Migraine [Recovering/Resolving]
